FAERS Safety Report 7316261-5 (Version None)
Quarter: 2011Q1

REPORT INFORMATION
  Report Type: 
  Country: None (occurrence: None)
  Receive Date: 20110225
  Receipt Date: 20110221
  Transmission Date: 20110831
  Serious: Yes (Other)
  Sender: FDA-Public Use
  Company Number: US-PFIZER INC-2011003212

PATIENT
  Sex: Female
  Weight: 59 kg

DRUGS (1)
  1. XALATAN [Suspect]
     Indication: GLAUCOMA
     Dosage: 1 DROP EACH EYE
     Dates: start: 20030101

REACTIONS (2)
  - MACULAR DEGENERATION [None]
  - DRUG INEFFECTIVE [None]
